FAERS Safety Report 19898609 (Version 1)
Quarter: 2021Q3

REPORT INFORMATION
  Report Type: Spontaneous
  Country: US (occurrence: US)
  Receive Date: 20210930
  Receipt Date: 20210930
  Transmission Date: 20211014
  Serious: No
  Sender: FDA-Public Use
  Company Number: US-BION-009680

PATIENT

DRUGS (1)
  1. BION PHARMA^S LOPERAMIDE 2MG [Suspect]
     Active Substance: LOPERAMIDE HYDROCHLORIDE
     Indication: PRODUCT USED FOR UNKNOWN INDICATION
     Dosage: 2MG 3/WEEK

REACTIONS (1)
  - Product storage error [Not Recovered/Not Resolved]
